FAERS Safety Report 4506407-6 (Version None)
Quarter: 2004Q4

REPORT INFORMATION
  Report Type: 
  Country: None (occurrence: None)
  Receive Date: 20041025
  Receipt Date: 20040729
  Transmission Date: 20050328
  Serious: Yes (Other)
  Sender: FDA-Public Use
  Company Number: US-JNJFOC-20040800595

PATIENT
  Age: 74 Year
  Sex: Female
  Weight: 83.0083 kg

DRUGS (3)
  1. REMICADE [Suspect]
     Indication: RHEUMATOID ARTHRITIS
     Dosage: 400 MG, INTRAVENOUS
     Route: 042
     Dates: start: 20040527
  2. MAXIDE (DYAZIDE) [Concomitant]
  3. ATENOL (ATENOLOL) [Concomitant]

REACTIONS (1)
  - BASAL CELL CARCINOMA [None]
